FAERS Safety Report 23347810 (Version 2)
Quarter: 2024Q1

REPORT INFORMATION
  Report Type: Spontaneous
  Country: US (occurrence: US)
  Receive Date: 20231228
  Receipt Date: 20240104
  Transmission Date: 20240410
  Serious: Yes (Other)
  Sender: FDA-Public Use
  Company Number: US-TAKEDA-2023TUS124220

PATIENT
  Age: 41 Year
  Sex: Female

DRUGS (1)
  1. TRINTELLIX [Suspect]
     Active Substance: VORTIOXETINE HYDROBROMIDE
     Indication: Major depression
     Dosage: UNK
     Route: 065

REACTIONS (16)
  - Suicide attempt [Unknown]
  - Suicidal ideation [Unknown]
  - Depressed mood [Unknown]
  - Anhedonia [Unknown]
  - Insomnia [Unknown]
  - Fatigue [Unknown]
  - Asthenia [Unknown]
  - Feelings of worthlessness [Unknown]
  - Feeling guilty [Unknown]
  - Negative thoughts [Unknown]
  - Anxiety [Unknown]
  - Feeling abnormal [Unknown]
  - Sedation [Unknown]
  - Sexual dysfunction [Unknown]
  - Nausea [Unknown]
  - Vomiting [Unknown]
